FAERS Safety Report 24129109 (Version 4)
Quarter: 2024Q3

REPORT INFORMATION
  Report Type: Spontaneous
  Country: US (occurrence: US)
  Receive Date: 20240723
  Receipt Date: 20240821
  Transmission Date: 20241017
  Serious: No
  Sender: BIOGEN
  Company Number: US-BIOGEN-2022BI01155871

PATIENT
  Sex: Female

DRUGS (1)
  1. TYSABRI [Suspect]
     Active Substance: NATALIZUMAB
     Indication: Multiple sclerosis
     Route: 050
     Dates: start: 20211028

REACTIONS (7)
  - Therapeutic response shortened [Not Recovered/Not Resolved]
  - Brain fog [Not Recovered/Not Resolved]
  - Feeling abnormal [Unknown]
  - Hypoaesthesia [Unknown]
  - Paraesthesia [Unknown]
  - Muscle spasms [Unknown]
  - Fatigue [Unknown]
